FAERS Safety Report 4565602-0 (Version None)
Quarter: 2005Q1

REPORT INFORMATION
  Report Type: 
  Country: None (occurrence: None)
  Receive Date: 20050125
  Receipt Date: 20050125
  Transmission Date: 20050727
  Serious: Yes (Hospitalization)
  Sender: FDA-Public Use
  Company Number: None

PATIENT
  Age: 66 Year
  Sex: Male
  Weight: 116.9 kg

DRUGS (11)
  1. WARFARIN SODIUM [Suspect]
     Indication: ANEURYSM
     Dosage: ORAL
     Route: 048
     Dates: start: 20040826
  2. WARFARIN SODIUM [Suspect]
     Indication: ANGIOPLASTY
     Dosage: ORAL
     Route: 048
     Dates: start: 20040826
  3. CLOPIDOGREL [Suspect]
  4. ASPIRIN [Suspect]
  5. NAPROXEN [Suspect]
  6. GLIPIZIDE [Concomitant]
  7. LISINOPRIL [Concomitant]
  8. METOPROLOL TARTRATE [Concomitant]
  9. SIMVASTATIN [Concomitant]
  10. COUMADIN [Concomitant]
  11. CLOPIDOGREL BISULFATE [Concomitant]

REACTIONS (1)
  - GASTROINTESTINAL HAEMORRHAGE [None]
